FAERS Safety Report 9663147 (Version 3)
Quarter: 2014Q1

REPORT INFORMATION
  Report Type: Report from Study
  Country: JP (occurrence: JP)
  Receive Date: 20131101
  Receipt Date: 20140123
  Transmission Date: 20141002
  Serious: Yes (Hospitalization)
  Sender: FDA-Public Use
  Company Number: JP-AMGEN-JPNCT2013076737

PATIENT
  Age: 79 Year
  Sex: Male
  Weight: 60 kg

DRUGS (12)
  1. DARBEPOETIN ALFA [Suspect]
     Indication: NEPHROGENIC ANAEMIA
     Dosage: 30 MCG, Q4WK
     Route: 058
     Dates: start: 20111019
  2. LEUPLIN [Concomitant]
     Dosage: UNK
     Route: 065
  3. CONIEL [Concomitant]
     Dosage: UNK
     Route: 048
  4. CADEMESIN [Concomitant]
     Dosage: UNK
     Route: 048
  5. ZYLORIC [Concomitant]
     Dosage: UNK
     Route: 048
  6. ZANTAC [Concomitant]
     Dosage: UNK
     Route: 048
  7. KALIMATE [Concomitant]
     Dosage: UNK
     Route: 048
  8. SODIUM BICARBONATE [Concomitant]
     Dosage: UNK
     Route: 048
  9. FEBURIC [Concomitant]
     Dosage: UNK
     Route: 048
  10. MAGMITT [Concomitant]
     Dosage: UNK
     Route: 048
  11. FERROMIA [Concomitant]
     Dosage: UNK
     Route: 048
  12. ALFAROL [Concomitant]
     Indication: HYPERPARATHYROIDISM SECONDARY
     Dosage: UNK
     Route: 048

REACTIONS (2)
  - Gastric cancer [Recovering/Resolving]
  - Colon cancer [Recovering/Resolving]
